FAERS Safety Report 6516423-0 (Version None)
Quarter: 2009Q4

REPORT INFORMATION
  Report Type: 
  Country: None (occurrence: None)
  Receive Date: 20091223
  Receipt Date: 20091216
  Transmission Date: 20100525
  Serious: Yes (Other)
  Sender: FDA-Public Use
  Company Number: B0617028A

PATIENT
  Age: 53 Year
  Sex: Female
  Weight: 69.85 kg

DRUGS (1)
  1. ONDANSETRON [Suspect]
     Route: 048

REACTIONS (2)
  - GRAND MAL CONVULSION [None]
  - VOMITING [None]
